FAERS Safety Report 9953754 (Version 1)
Quarter: 2014Q1

REPORT INFORMATION
  Report Type: Report from Study
  Country: US (occurrence: US)
  Receive Date: 20140304
  Receipt Date: 20140304
  Transmission Date: 20141002
  Serious: No
  Sender: FDA-Public Use
  Company Number: US-ABBVIE-13P-163-1080391-00

PATIENT
  Age: 40 Year
  Sex: Male
  Weight: 123.94 kg

DRUGS (7)
  1. HUMIRA [Suspect]
     Indication: CROHN^S DISEASE
  2. BYSTOLIC [Concomitant]
     Indication: HYPERTENSION
  3. KEPPRA [Concomitant]
     Indication: CONVULSION
  4. PREDNISONE [Concomitant]
     Indication: CROHN^S DISEASE
  5. PENTASA [Concomitant]
     Indication: CROHN^S DISEASE
  6. ALBUTEROL [Concomitant]
     Indication: ASTHMA
  7. ADVAIR [Concomitant]
     Indication: ASTHMA

REACTIONS (1)
  - Drug prescribing error [Recovered/Resolved]
